FAERS Safety Report 7579559-1 (Version None)
Quarter: 2011Q2

REPORT INFORMATION
  Report Type: 
  Country: None (occurrence: None)
  Receive Date: 20110629
  Receipt Date: 20110622
  Transmission Date: 20111010
  Serious: Yes (Other)
  Sender: FDA-Public Use
  Company Number: US-JNJFOC-20100702316

PATIENT
  Sex: Female

DRUGS (2)
  1. LEVAQUIN [Suspect]
     Indication: PNEUMONIA
     Route: 048
     Dates: start: 20070821, end: 20070829
  2. LEVAQUIN [Suspect]
     Indication: BRONCHITIS
     Route: 048
     Dates: start: 20070821, end: 20070829

REACTIONS (7)
  - TENDONITIS [None]
  - TENOSYNOVITIS [None]
  - TENDON RUPTURE [None]
  - BURSITIS [None]
  - NODULE [None]
  - TRIGGER FINGER [None]
  - PAIN IN EXTREMITY [None]
